FAERS Safety Report 6178284-1 (Version None)
Quarter: 2009Q2

REPORT INFORMATION
  Report Type: 
  Country: None (occurrence: None)
  Receive Date: 20090504
  Receipt Date: 20090428
  Transmission Date: 20091009
  Serious: Yes (Life-Threatening, Hospitalization)
  Sender: FDA-Public Use
  Company Number: B0572150A

PATIENT
  Sex: Male

DRUGS (5)
  1. TRIZIVIR [Suspect]
     Indication: HIV INFECTION
     Dosage: 2TAB PER DAY
     Route: 048
     Dates: start: 20000101, end: 20090323
  2. REYATAZ [Suspect]
     Indication: HIV INFECTION
     Dosage: 200MG PER DAY
     Route: 048
     Dates: start: 20050501, end: 20090323
  3. NORVIR [Suspect]
     Indication: HIV INFECTION
     Dosage: 100MG PER DAY
     Route: 048
     Dates: start: 20000101, end: 20090323
  4. IMOVANE [Concomitant]
     Dosage: 1TAB PER DAY
     Route: 048
     Dates: start: 20080101
  5. VOLTAREN [Concomitant]
     Dosage: 75MG PER DAY
     Route: 048

REACTIONS (1)
  - MYOCARDIAL INFARCTION [None]
